FAERS Safety Report 4695493-9 (Version None)
Quarter: 2005Q2

REPORT INFORMATION
  Report Type: 
  Country: None (occurrence: None)
  Receive Date: 20050620
  Receipt Date: 20050620
  Transmission Date: 20051028
  Serious: Yes (Other)
  Sender: FDA-Public Use
  Company Number: None

PATIENT
  Age: 68 Year
  Sex: Female
  Weight: 70 kg

DRUGS (4)
  1. FOSPHENYTOIN SODIUM [Suspect]
     Indication: CONVULSION
     Dosage: 1000 MG    ONETIME   INTRAVENOU
     Route: 042
     Dates: start: 20050616, end: 20050616
  2. FOSPHENYTOIN SODIUM [Suspect]
     Indication: GLIOBLASTOMA MULTIFORME
     Dosage: 1000 MG    ONETIME   INTRAVENOU
     Route: 042
     Dates: start: 20050616, end: 20050616
  3. DEXAMETHASONE [Concomitant]
  4. LORAZEPAM [Concomitant]

REACTIONS (2)
  - HYPOTENSION [None]
  - INFUSION RELATED REACTION [None]
